FAERS Safety Report 24267784 (Version 1)
Quarter: 2024Q3

REPORT INFORMATION
  Report Type: Spontaneous
  Country: GB (occurrence: GB)
  Receive Date: 20240830
  Receipt Date: 20240830
  Transmission Date: 20241016
  Serious: Yes (Other)
  Sender: ASCEND
  Company Number: GB-Ascend Therapeutics US, LLC-2160997

PATIENT
  Sex: Male

DRUGS (3)
  1. ANDROGEL [Suspect]
     Active Substance: TESTOSTERONE
     Indication: Product used for unknown indication
     Route: 065
     Dates: end: 2024
  2. TESTOSTERONE [Suspect]
     Active Substance: TESTOSTERONE
     Route: 065
     Dates: end: 2024
  3. TESTOSTERONE [Suspect]
     Active Substance: TESTOSTERONE
     Route: 065
     Dates: start: 2024

REACTIONS (2)
  - Arthralgia [Unknown]
  - Product administered at inappropriate site [Unknown]

NARRATIVE: CASE EVENT DATE: 20230101
